FAERS Safety Report 9639831 (Version 1)
Quarter: 2013Q4

REPORT INFORMATION
  Report Type: Spontaneous
  Country: US (occurrence: None)
  Receive Date: 20131021
  Receipt Date: 20131021
  Transmission Date: 20140711
  Serious: Yes (Other)
  Sender: FDA-Public Use
  Company Number: None

PATIENT
  Age: 87 Year
  Sex: Male
  Weight: 79.38 kg

DRUGS (1)
  1. TOVIAZ 4MG [Suspect]
     Dosage: 1 PILL ONCE DAILY TAKEN BY MOUTH
     Route: 048
     Dates: start: 20130925, end: 20131006

REACTIONS (3)
  - Pain [None]
  - Rash erythematous [None]
  - Secretion discharge [None]
